FAERS Safety Report 10818834 (Version 1)
Quarter: 2015Q1

REPORT INFORMATION
  Report Type: Report from Study
  Country: US (occurrence: US)
  Receive Date: 20150218
  Receipt Date: 20150218
  Transmission Date: 20150721
  Serious: No
  Sender: FDA-Public Use
  Company Number: US-ABBVIE-14K-163-1291816-00

PATIENT
  Age: 41 Year
  Sex: Female

DRUGS (11)
  1. TRAMADOL [Concomitant]
     Active Substance: TRAMADOL
     Indication: FIBROMYALGIA
  2. HUMIRA [Suspect]
     Active Substance: ADALIMUMAB
     Indication: RHEUMATOID ARTHRITIS
     Route: 065
     Dates: start: 20140827
  3. HYDROCODONE [Concomitant]
     Active Substance: HYDROCODONE
     Indication: ARTHRALGIA
  4. LYRICA [Concomitant]
     Active Substance: PREGABALIN
     Indication: FIBROMYALGIA
  5. PRE NATAL VITAMINS [Concomitant]
     Indication: VITAMIN SUPPLEMENTATION
  6. BACLOFEN. [Concomitant]
     Active Substance: BACLOFEN
     Indication: INSOMNIA
  7. XANAX [Concomitant]
     Active Substance: ALPRAZOLAM
     Indication: ANXIETY
  8. CLONAZEPAM. [Concomitant]
     Active Substance: CLONAZEPAM
     Indication: ANXIETY
  9. HYDROCODONE [Concomitant]
     Active Substance: HYDROCODONE
     Indication: FIBROMYALGIA
     Dosage: 10/325
  10. TRAMADOL [Concomitant]
     Active Substance: TRAMADOL
     Indication: ARTHRALGIA
  11. CYMBALTA [Concomitant]
     Active Substance: DULOXETINE HYDROCHLORIDE
     Indication: DEPRESSION

REACTIONS (7)
  - Underdose [Unknown]
  - Chronic obstructive pulmonary disease [Unknown]
  - Drug dose omission [Unknown]
  - Injection site haemorrhage [Unknown]
  - Injection site bruising [Not Recovered/Not Resolved]
  - Injection site pruritus [Recovered/Resolved]
  - Injection site bruising [Not Recovered/Not Resolved]

NARRATIVE: CASE EVENT DATE: 20140827
